FAERS Safety Report 24833533 (Version 2)
Quarter: 2025Q3

REPORT INFORMATION
  Report Type: Spontaneous
  Country: EU (occurrence: EU)
  Receive Date: 20250112
  Receipt Date: 20250810
  Transmission Date: 20251020
  Serious: Yes (Other)
  Sender: ALEXION PHARMACEUTICALS
  Company Number: EU-AstraZeneca-CH-00781908A

PATIENT
  Age: 36 Year
  Sex: Male

DRUGS (2)
  1. DAPAGLIFLOZIN [Suspect]
     Active Substance: DAPAGLIFLOZIN
     Indication: Chronic kidney disease
     Dosage: BEFORE BREAKFAST
     Dates: start: 202410
  2. RAMIPRIL [Concomitant]
     Active Substance: RAMIPRIL
     Route: 065

REACTIONS (6)
  - Hypotension [Recovering/Resolving]
  - Blood creatine increased [Unknown]
  - Glomerular filtration rate decreased [Unknown]
  - Azotaemia [Unknown]
  - Glycosuria [Unknown]
  - Blood bicarbonate decreased [Unknown]
